FAERS Safety Report 4459726-6 (Version None)
Quarter: 2004Q3

REPORT INFORMATION
  Report Type: 
  Country: None (occurrence: None)
  Receive Date: 20040922
  Receipt Date: 20040922
  Transmission Date: 20050211
  Serious: Yes (Other)
  Sender: FDA-Public Use
  Company Number: None

PATIENT
  Age: 13 Year
  Sex: Female
  Weight: 49.8957 kg

DRUGS (1)
  1. CORICIDIN [Suspect]
     Dosage: 4+ TABLETS ORAL
     Route: 048

REACTIONS (7)
  - INTENTIONAL MISUSE [None]
  - LETHARGY [None]
  - MARKEDLY REDUCED DIETARY INTAKE [None]
  - MEDICATION ERROR [None]
  - PARANOIA [None]
  - SOMNOLENCE [None]
  - VOMITING [None]
